FAERS Safety Report 15616895 (Version 1)
Quarter: 2018Q4

REPORT INFORMATION
  Report Type: Spontaneous
  Country: US (occurrence: US)
  Receive Date: 20181114
  Receipt Date: 20181114
  Transmission Date: 20190205
  Serious: Yes (Hospitalization)
  Sender: FDA-Public Use
  Company Number: US-PFIZER INC-2018458518

PATIENT
  Age: 43 Year
  Sex: Female
  Weight: 72.57 kg

DRUGS (1)
  1. LYRICA [Suspect]
     Active Substance: PREGABALIN
     Indication: DIABETIC NEUROPATHY
     Dosage: 200 MG, 4X/DAY
     Route: 048
     Dates: start: 2003, end: 2018

REACTIONS (2)
  - Overdose [Unknown]
  - Foot fracture [Unknown]

NARRATIVE: CASE EVENT DATE: 2003
